FAERS Safety Report 6888191-4 (Version None)
Quarter: 2010Q3

REPORT INFORMATION
  Report Type: 
  Country: None (occurrence: None)
  Receive Date: 20100730
  Receipt Date: 20100722
  Transmission Date: 20110219
  Serious: Yes (Hospitalization, Other)
  Sender: FDA-Public Use
  Company Number: US-JNJFOC-20100510343

PATIENT
  Weight: 8.16 kg

DRUGS (2)
  1. CONCENTRATED TYLENOL INFANT DROPS [Suspect]
     Route: 048
  2. CONCENTRATED TYLENOL INFANT DROPS [Suspect]
     Indication: TEETHING
     Dosage: AS RECOMMENDED, EVERY 4-6 HOURS
     Route: 048

REACTIONS (4)
  - HAEMOGLOBIN DECREASED [None]
  - HYPERSENSITIVITY [None]
  - KAWASAKI'S DISEASE [None]
  - PRODUCT QUALITY ISSUE [None]
